FAERS Safety Report 5823517-1 (Version None)
Quarter: 2008Q3

REPORT INFORMATION
  Report Type: 
  Country: None (occurrence: None)
  Receive Date: 20080725
  Receipt Date: 20080715
  Transmission Date: 20090109
  Serious: Yes (Other)
  Sender: FDA-Public Use
  Company Number: DE-PFIZER INC-2008059629

PATIENT
  Age: 75 Year
  Sex: Female

DRUGS (5)
  1. INSPRA [Suspect]
     Dosage: TEXT:HALF TABLET A DAY
     Route: 048
  2. METOHEXAL [Concomitant]
  3. DIOVANE [Concomitant]
  4. METFORMIN HCL [Concomitant]
  5. CRATAEGUTT [Concomitant]

REACTIONS (7)
  - DEHYDRATION [None]
  - DIZZINESS [None]
  - GAIT DISTURBANCE [None]
  - HEADACHE [None]
  - NERVOUSNESS [None]
  - NIGHTMARE [None]
  - POLYURIA [None]
